FAERS Safety Report 4716315-3 (Version None)
Quarter: 2005Q3

REPORT INFORMATION
  Report Type: 
  Country: None (occurrence: None)
  Receive Date: 20050711
  Receipt Date: 20050211
  Transmission Date: 20060218
  Serious: Yes (Hospitalization)
  Sender: FDA-Public Use
  Company Number: 395398

PATIENT
  Age: 40 Year
  Sex: Male
  Weight: 116.6 kg

DRUGS (8)
  1. CELLCEPT [Suspect]
     Indication: NEPHROTIC SYNDROME
     Dosage: 2 GRAM 1 PER DAY
     Dates: start: 20041229, end: 20050126
  2. LASIX (MYCOPHENOLATE MOFETIL) [Concomitant]
  3. POTASSIUM CHLORIDE [Concomitant]
  4. ZITHROMAX [Concomitant]
  5. BENZOATE (BENZONATATE) [Concomitant]
  6. LEVAQUIN [Concomitant]
  7. SOLU-MEDROL [Concomitant]
  8. PREDNISONE [Concomitant]

REACTIONS (26)
  - ABDOMINAL PAIN [None]
  - BLOOD PRESSURE FLUCTUATION [None]
  - CHEST PAIN [None]
  - COUGH [None]
  - DIARRHOEA [None]
  - DYSPHAGIA [None]
  - DYSPHONIA [None]
  - DYSPNOEA [None]
  - ELECTROCARDIOGRAM ABNORMAL [None]
  - HEADACHE [None]
  - HYPOXIA [None]
  - INFLUENZA LIKE ILLNESS [None]
  - LOCAL SWELLING [None]
  - LUNG INFILTRATION [None]
  - MASS [None]
  - NECK PAIN [None]
  - NEOPLASM [None]
  - PHARYNGOLARYNGEAL PAIN [None]
  - PNEUMONIA [None]
  - POLYCYTHAEMIA [None]
  - PROTEIN URINE [None]
  - RENAL IMPAIRMENT [None]
  - RESPIRATORY DISORDER [None]
  - SWELLING [None]
  - VOMITING [None]
  - WEIGHT DECREASED [None]
